FAERS Safety Report 25961591 (Version 1)
Quarter: 2025Q4

REPORT INFORMATION
  Report Type: Spontaneous
  Country: CN (occurrence: CN)
  Receive Date: 20251027
  Receipt Date: 20251027
  Transmission Date: 20260117
  Serious: Yes (Hospitalization, Other)
  Sender: STRIDES
  Company Number: CN-STRIDES ARCOLAB LIMITED-2025SP013298

PATIENT
  Age: 57 Year
  Sex: Female

DRUGS (4)
  1. FUROSEMIDE [Suspect]
     Active Substance: FUROSEMIDE
     Indication: Dilated cardiomyopathy
     Dosage: 20 MILLIGRAM, QD
     Route: 065
     Dates: start: 2022
  2. SACUBITRIL\VALSARTAN [Suspect]
     Active Substance: SACUBITRIL\VALSARTAN
     Indication: Dilated cardiomyopathy
     Dosage: 50 MILLIGRAM, BID
     Route: 065
     Dates: start: 2022
  3. SPIRONOLACTONE [Suspect]
     Active Substance: SPIRONOLACTONE
     Indication: Dilated cardiomyopathy
     Dosage: 20 MILLIGRAM, QD
     Route: 065
     Dates: start: 2022
  4. METOPROLOL SUCCINATE [Suspect]
     Active Substance: METOPROLOL SUCCINATE
     Indication: Dilated cardiomyopathy
     Dosage: EXTENDED RELEASE
     Route: 065
     Dates: start: 2022

REACTIONS (2)
  - Disease progression [Unknown]
  - Off label use [Unknown]
